FAERS Safety Report 8222938-X (Version None)
Quarter: 2012Q1

REPORT INFORMATION
  Report Type: 
  Country: None (occurrence: None)
  Receive Date: 20120320
  Receipt Date: 20120307
  Transmission Date: 20120608
  Serious: Yes (Death, Other)
  Sender: FDA-Public Use
  Company Number: PHEH2011US010418

PATIENT
  Sex: Female
  Weight: 77.098 kg

DRUGS (6)
  1. METOPROLOL SUCCINATE [Interacting]
     Dosage: 50 MG, EVERY MORNING
     Dates: start: 20100201
  2. RESTORIL [Concomitant]
     Dosage: 15 MG, AS NEEDED
     Dates: start: 20110811
  3. NAPROXEN (ALEVE) [Suspect]
     Indication: HEADACHE
  4. GILENYA [Interacting]
     Indication: MULTIPLE SCLEROSIS
     Dosage: 0.5 MG, ONCE/SINGLE
     Route: 048
     Dates: start: 20111122
  5. METOPROLOL SUCCINATE [Interacting]
     Dosage: 10 MG, QD, EVERY MORNING
     Dates: start: 20100201
  6. NORVASC [Interacting]
     Indication: HYPERTENSION
     Dosage: 10 MG, EVERY EVENING
     Dates: start: 20110603

REACTIONS (4)
  - HEADACHE [None]
  - DRUG INTERACTION [None]
  - HEART RATE DECREASED [None]
  - DEATH [None]
